FAERS Safety Report 5946185-7 (Version None)
Quarter: 2008Q4

REPORT INFORMATION
  Report Type: 
  Country: None (occurrence: None)
  Receive Date: 20081106
  Receipt Date: 20081106
  Transmission Date: 20090506
  Serious: Yes (Other)
  Sender: FDA-Public Use
  Company Number: None

PATIENT
  Age: 11 Year
  Sex: Male
  Weight: 40.3701 kg

DRUGS (5)
  1. SINGULAIR [Suspect]
     Indication: ASTHMA
     Dosage: 5 MG CHEWTAB DAILY PO
     Route: 048
     Dates: start: 20080901, end: 20081102
  2. TUSSI-12 D [Concomitant]
  3. XYZAL [Concomitant]
  4. ALLEGRA [Concomitant]
  5. M.V.I. [Concomitant]

REACTIONS (9)
  - AGGRESSION [None]
  - ANGER [None]
  - DEPRESSION [None]
  - FEELING ABNORMAL [None]
  - HEADACHE [None]
  - IRRITABILITY [None]
  - MYALGIA [None]
  - SUICIDAL BEHAVIOUR [None]
  - SUICIDAL IDEATION [None]
